FAERS Safety Report 4989605-7 (Version None)
Quarter: 2006Q2

REPORT INFORMATION
  Report Type: 
  Country: None (occurrence: None)
  Receive Date: 20060426
  Receipt Date: 20060412
  Transmission Date: 20061013
  Serious: No
  Sender: FDA-Public Use
  Company Number: 200612096BWH

PATIENT
  Age: 56 Year
  Sex: Male

DRUGS (5)
  1. NEXAVAR [Suspect]
     Indication: RENAL CELL CARCINOMA STAGE UNSPECIFIED
     Dosage: 400 MG, BID, ORAL
     Route: 048
     Dates: start: 20060201
  2. TOPROL-XL [Concomitant]
  3. LEVOTHYROXINE SODIUM [Concomitant]
  4. TERAZOSIN HCL [Concomitant]
  5. ASPIRIN [Concomitant]

REACTIONS (4)
  - ALOPECIA [None]
  - DIARRHOEA [None]
  - DRY SKIN [None]
  - HEART RATE IRREGULAR [None]
